FAERS Safety Report 10057001 (Version 1)
Quarter: 2014Q2

REPORT INFORMATION
  Report Type: Spontaneous
  Country: US (occurrence: US)
  Receive Date: 20140403
  Receipt Date: 20140403
  Transmission Date: 20141212
  Serious: Yes (Other)
  Sender: FDA-Public Use
  Company Number: US-MYLANLABS-2014S1007128

PATIENT
  Age: 62 Year
  Sex: Female
  Weight: 158.76 kg

DRUGS (2)
  1. FENTANYL TRANSDERMAL SYSTEM [Suspect]
     Indication: PAIN
     Dosage: CHANGED Q 48HR
     Route: 062
     Dates: start: 201312, end: 20140313
  2. NORCO [Concomitant]
     Indication: BREAKTHROUGH PAIN

REACTIONS (3)
  - Overdose [Recovered/Resolved]
  - Unresponsive to stimuli [Recovered/Resolved]
  - Respiratory failure [Recovered/Resolved]
